FAERS Safety Report 23057037 (Version 3)
Quarter: 2023Q4

REPORT INFORMATION
  Report Type: Spontaneous
  Country: SI (occurrence: SI)
  Receive Date: 20231012
  Receipt Date: 20231027
  Transmission Date: 20240110
  Serious: Yes (Life-Threatening, Hospitalization, Other)
  Sender: FDA-Public Use
  Company Number: SI-JUBILANT CADISTA PHARMACEUTICALS-2023SI001253

PATIENT
  Age: 69 Year
  Sex: Female

DRUGS (15)
  1. RISPERIDONE [Suspect]
     Active Substance: RISPERIDONE
     Indication: Schizophrenia
     Dosage: 4 MG, ONCE PER DAY (STARTED ON FIFTH HOSPITALIZATION)
     Route: 065
     Dates: start: 2021, end: 202212
  2. RISPERIDONE [Suspect]
     Active Substance: RISPERIDONE
     Dosage: 5 MG, ONCE PER DAY (MOVED TO AN INTENSIVE IN-WARD PSYCHIATRIC UNIT DUE TO WORSENING PSYCHOTIC SYMPTO
     Route: 065
     Dates: start: 202212
  3. RISPERIDONE [Suspect]
     Active Substance: RISPERIDONE
     Dosage: 9 MG, ONCE PER DAY
     Route: 065
     Dates: end: 20230112
  4. RISPERIDONE [Suspect]
     Active Substance: RISPERIDONE
     Dosage: 8 MG, ONCE PER DAY
     Route: 065
     Dates: start: 20230113, end: 202301
  5. RISPERIDONE [Suspect]
     Active Substance: RISPERIDONE
     Dosage: 6 MG, ONCE PER DAY
     Route: 065
     Dates: start: 202301, end: 20230118
  6. RISPERIDONE [Suspect]
     Active Substance: RISPERIDONE
     Dosage: UNK, ONCE PER DAY
     Route: 065
     Dates: start: 202212, end: 202212
  7. QUETIAPINE FUMARATE [Suspect]
     Active Substance: QUETIAPINE FUMARATE
     Indication: Schizophrenia
     Dosage: 50 MG, ONCE PER DAY
     Route: 065
     Dates: start: 20230113, end: 202301
  8. QUETIAPINE FUMARATE [Suspect]
     Active Substance: QUETIAPINE FUMARATE
     Dosage: 100 MG, ONCE PER DAY
     Route: 065
     Dates: start: 20230123
  9. QUETIAPINE FUMARATE [Suspect]
     Active Substance: QUETIAPINE FUMARATE
     Dosage: 25 MG, ONCE PER DAY
     Route: 065
     Dates: start: 20230202, end: 20230222
  10. OLANZAPINE [Suspect]
     Active Substance: OLANZAPINE
     Indication: Schizophrenia
     Dosage: 5 MG, ONCE PER DAY
     Route: 065
     Dates: start: 20230116, end: 202301
  11. OLANZAPINE [Suspect]
     Active Substance: OLANZAPINE
     Dosage: 15 MG, ONCE PER DAY
     Route: 065
     Dates: start: 20230118
  12. OLANZAPINE [Suspect]
     Active Substance: OLANZAPINE
     Dosage: 20 MG, ONCE PER DAY
     Route: 065
     Dates: start: 202301, end: 20230123
  13. BIPERIDEN [Concomitant]
     Active Substance: BIPERIDEN
     Indication: Parkinson^s disease
     Dosage: 2 MG, 2 TIMES PER DAY
     Route: 065
     Dates: start: 20230112, end: 202301
  14. BIPERIDEN [Concomitant]
     Active Substance: BIPERIDEN
     Indication: Extrapyramidal disorder
     Dosage: 3 MG, ONCE PER DAY
     Route: 065
     Dates: start: 202301
  15. LORAZEPAM [Concomitant]
     Active Substance: LORAZEPAM
     Indication: Product used for unknown indication
     Dosage: 3 MG, ONCE PER DAY
     Route: 065

REACTIONS (13)
  - Pulmonary embolism [Recovering/Resolving]
  - Cardiac arrest [Recovered/Resolved]
  - Extrapyramidal disorder [Unknown]
  - Schizophrenia [Not Recovered/Not Resolved]
  - Hallucination, auditory [Not Recovered/Not Resolved]
  - Psychomotor hyperactivity [Unknown]
  - Parkinsonism [Unknown]
  - Bradykinesia [Unknown]
  - Muscle rigidity [Unknown]
  - Parkinsonian gait [Unknown]
  - Resting tremor [Unknown]
  - Speech disorder [Unknown]
  - Atrial fibrillation [Recovering/Resolving]

NARRATIVE: CASE EVENT DATE: 20230101
